FAERS Safety Report 24701255 (Version 1)
Quarter: 2024Q4

REPORT INFORMATION
  Report Type: Report from Study
  Country: US (occurrence: US)
  Receive Date: 20241205
  Receipt Date: 20241205
  Transmission Date: 20250114
  Serious: Yes (Death)
  Sender: ABBVIE
  Company Number: US-ABBVIE-6031777

PATIENT
  Age: 69 Year
  Sex: Male

DRUGS (3)
  1. DUOPA [Suspect]
     Active Substance: CARBIDOPA\LEVODOPA
     Indication: Parkinson^s disease
     Dosage: STRENGTH: 4.63-20MG  100ML X 7) ?ADMINISTER CONTENTS OF 2 CASSETTES VIA PEG-J FOR UP TO 24 HOURS ...
     Route: 050
     Dates: start: 202301
  2. DUOPA [Suspect]
     Active Substance: CARBIDOPA\LEVODOPA
  3. NUPLAZID [Concomitant]
     Active Substance: PIMAVANSERIN TARTRATE
     Indication: Psychotic disorder

REACTIONS (1)
  - Death [Fatal]

NARRATIVE: CASE EVENT DATE: 20241112
